FAERS Safety Report 17416913 (Version 2)
Quarter: 2020Q1

REPORT INFORMATION
  Report Type: Spontaneous
  Country: PL (occurrence: PL)
  Receive Date: 20200214
  Receipt Date: 20200214
  Transmission Date: 20200409
  Serious: Yes (Hospitalization, Other)
  Sender: FDA-Public Use
  Company Number: PL-009507513-2001POL007222

PATIENT
  Age: 69 Year
  Sex: Male
  Weight: 90 kg

DRUGS (5)
  1. LOZAP [Concomitant]
     Dosage: 50 MG
     Route: 048
  2. NORMODIPINE [Concomitant]
     Active Substance: AMLODIPINE BESYLATE
     Dosage: 5 MG
     Route: 048
  3. EFFOX [Concomitant]
     Active Substance: ISOSORBIDE MONONITRATE
     Dosage: 50 MG
     Route: 048
  4. PEMBROLIZUMAB. [Suspect]
     Active Substance: PEMBROLIZUMAB
     Indication: MALIGNANT MELANOMA
     Dosage: 200 MG, EVERY 3 WEEKS
     Route: 042
     Dates: start: 20191017, end: 20191107
  5. POLOCARD [Concomitant]
     Active Substance: ASPIRIN
     Dosage: 150 MG
     Route: 048

REACTIONS (5)
  - Encephalopathy [Recovering/Resolving]
  - Cerebrovascular accident [Unknown]
  - Altered state of consciousness [Unknown]
  - Epilepsy [Recovering/Resolving]
  - Pneumonia [Recovering/Resolving]

NARRATIVE: CASE EVENT DATE: 20191120
